FAERS Safety Report 24145117 (Version 3)
Quarter: 2024Q3

REPORT INFORMATION
  Report Type: Spontaneous
  Country: JP (occurrence: JP)
  Receive Date: 20240729
  Receipt Date: 20240904
  Transmission Date: 20241017
  Serious: Yes (Other)
  Sender: MERCK
  Company Number: JP-MSD-2306JPN001798J

PATIENT
  Age: 71 Year
  Sex: Male

DRUGS (4)
  1. KEYTRUDA [Suspect]
     Active Substance: PEMBROLIZUMAB
     Indication: Transitional cell cancer of the renal pelvis and ureter
     Dosage: UNK
     Route: 041
     Dates: start: 202207, end: 202209
  2. PADCEV [Suspect]
     Active Substance: ENFORTUMAB VEDOTIN-EJFV
     Indication: Transitional cell cancer of the renal pelvis and ureter
     Dosage: 1.25 MILLIGRAM/KILOGRAM
     Route: 065
  3. PADCEV [Suspect]
     Active Substance: ENFORTUMAB VEDOTIN-EJFV
     Dosage: 1.0 MILLIGRAM/KILOGRAM
     Route: 065
  4. PADCEV [Suspect]
     Active Substance: ENFORTUMAB VEDOTIN-EJFV
     Dosage: 1.0 MILLIGRAM/KILOGRAM
     Route: 065
     Dates: start: 2023

REACTIONS (4)
  - Tumour hyperprogression [Recovering/Resolving]
  - Interstitial lung disease [Recovering/Resolving]
  - Immune-mediated enterocolitis [Recovered/Resolved]
  - Drug ineffective [Unknown]

NARRATIVE: CASE EVENT DATE: 20220101
